FAERS Safety Report 16063275 (Version 1)
Quarter: 2019Q1

REPORT INFORMATION
  Report Type: Report from Study
  Country: GB (occurrence: GB)
  Receive Date: 20190312
  Receipt Date: 20190312
  Transmission Date: 20190418
  Serious: Yes (Other)
  Sender: FDA-Public Use
  Company Number: GB-UCBSA-2018043791

PATIENT
  Age: 72 Year
  Sex: Female

DRUGS (2)
  1. CERTOLIZUMAB PEGOL RA AUTOCLICKS [Suspect]
     Active Substance: CERTOLIZUMAB PEGOL
     Dosage: 200 MG, EV 2 WEEKS(QOW)
     Route: 058
     Dates: start: 2018, end: 2018
  2. CERTOLIZUMAB PEGOL RA AUTOCLICKS [Suspect]
     Active Substance: CERTOLIZUMAB PEGOL
     Indication: RHEUMATOID ARTHRITIS
     Dosage: 400 MG, EV 2 WEEKS(QOW)
     Route: 058
     Dates: start: 20180914, end: 2018

REACTIONS (13)
  - Pain [Recovered/Resolved]
  - Headache [Recovering/Resolving]
  - Ill-defined disorder [Recovered/Resolved]
  - Product storage error [Unknown]
  - Influenza like illness [Recovered/Resolved]
  - Intentional product misuse [Unknown]
  - Drug ineffective [Unknown]
  - Lower respiratory tract infection [Not Recovered/Not Resolved]
  - Injection site discolouration [Recovering/Resolving]
  - Cough [Recovered/Resolved]
  - Product dose omission [Unknown]
  - Injection site alopecia [Unknown]
  - Feeling cold [Unknown]

NARRATIVE: CASE EVENT DATE: 2018
